FAERS Safety Report 8602218-0 (Version None)
Quarter: 2012Q3

REPORT INFORMATION
  Report Type: 
  Country: None (occurrence: None)
  Receive Date: 20120817
  Receipt Date: 20120810
  Transmission Date: 20120928
  Serious: Yes (Disabling, Other)
  Sender: FDA-Public Use
  Company Number: JP-PFIZER INC-2012158540

PATIENT
  Age: 33 Year
  Sex: Male

DRUGS (2)
  1. NEO-MEDROL [Suspect]
     Dosage: 1 G, 2X/DAY
     Route: 061
     Dates: start: 19960701
  2. LIDOMEX [Suspect]
     Dosage: 2 TO 3 G PER DOSE
     Route: 062
     Dates: end: 20100806

REACTIONS (1)
  - GLAUCOMA [None]
